FAERS Safety Report 4886233-9 (Version None)
Quarter: 2006Q1

REPORT INFORMATION
  Report Type: 
  Country: None (occurrence: None)
  Receive Date: 20060120
  Receipt Date: 20050804
  Transmission Date: 20060701
  Serious: Yes (Hospitalization)
  Sender: FDA-Public Use
  Company Number: PHHO2005ES12307

PATIENT
  Age: 48 Year
  Sex: Male

DRUGS (6)
  1. SIMULECT [Suspect]
     Indication: LUNG TRANSPLANT
     Dosage: 20 MG, DAY 0
     Route: 042
     Dates: start: 20031206, end: 20031206
  2. SIMULECT [Suspect]
     Dosage: 20 MG, DAY 4
     Route: 042
     Dates: start: 20031210, end: 20031210
  3. NEORAL [Suspect]
     Indication: LUNG TRANSPLANT
     Dosage: 325 MG/DAY
     Dates: start: 20040528, end: 20051124
  4. NEORAL [Suspect]
     Dosage: 150 MG, BID
     Dates: start: 20041125, end: 20041222
  5. AZATHIOPRINE [Suspect]
     Indication: LUNG TRANSPLANT
     Dosage: 50 MG/DAY
     Dates: start: 20031230, end: 20041107
  6. AZATHIOPRINE [Suspect]
     Dosage: 25 MG/DAY
     Dates: start: 20041108, end: 20041222

REACTIONS (2)
  - ASTHENIA [None]
  - PANCYTOPENIA [None]
